FAERS Safety Report 25716283 (Version 1)
Quarter: 2025Q3

REPORT INFORMATION
  Report Type: Report from Study
  Country: US (occurrence: US)
  Receive Date: 20250822
  Receipt Date: 20250822
  Transmission Date: 20251021
  Serious: Yes (Death, Hospitalization, Other)
  Sender: PFIZER
  Company Number: US-PFIZER INC-PV202500085795

PATIENT
  Age: 33 Year
  Sex: Female

DRUGS (4)
  1. BRAFTOVI [Suspect]
     Active Substance: ENCORAFENIB
     Indication: Colon cancer
     Dosage: 300 MG, 1X/DAY (TAKE 4 (75 MG) CAPSULES BY MOUTH 1 TIME A DAY)
     Route: 048
     Dates: start: 20250618, end: 20250717
  2. ERBITUX [Suspect]
     Active Substance: CETUXIMAB
  3. ERBITUX [Suspect]
     Active Substance: CETUXIMAB
     Dates: start: 20250707, end: 202507
  4. MEKTOVI [Concomitant]
     Active Substance: BINIMETINIB

REACTIONS (20)
  - Death [Fatal]
  - Oedema [Unknown]
  - Coccydynia [Unknown]
  - Condition aggravated [Unknown]
  - Mental disorder [Unknown]
  - Tachycardia [Unknown]
  - Urinary retention [Unknown]
  - Colon cancer [Unknown]
  - Malignant neoplasm progression [Unknown]
  - Metastases to spine [Unknown]
  - Oedema peripheral [Not Recovered/Not Resolved]
  - Localised oedema [Unknown]
  - Diarrhoea [Unknown]
  - Dermatitis acneiform [Unknown]
  - Arthralgia [Unknown]
  - Generalised oedema [Recovered/Resolved]
  - Hypoaesthesia [Recovering/Resolving]
  - Pain in extremity [Recovering/Resolving]
  - Somnolence [Unknown]
  - Chills [Recovered/Resolved]

NARRATIVE: CASE EVENT DATE: 20250101
